FAERS Safety Report 16913351 (Version 1)
Quarter: 2019Q4

REPORT INFORMATION
  Report Type: Spontaneous
  Country: US (occurrence: US)
  Receive Date: 20191014
  Receipt Date: 20191014
  Transmission Date: 20200122
  Serious: Yes (Hospitalization)
  Sender: FDA-Public Use
  Company Number: US-ROCHE-2430350

PATIENT
  Age: 73 Year
  Sex: Female

DRUGS (8)
  1. ESBRIET [Suspect]
     Active Substance: PIRFENIDONE
     Indication: IDIOPATHIC PULMONARY FIBROSIS
     Route: 048
  2. GLIPIZIDE. [Concomitant]
     Active Substance: GLIPIZIDE
  3. VITAMIN C [Concomitant]
     Active Substance: ASCORBIC ACID
  4. CRANBERRY [VACCINIUM SPP.] [Concomitant]
  5. AMOXICILLIN. [Concomitant]
     Active Substance: AMOXICILLIN
  6. WARFARIN [Concomitant]
     Active Substance: WARFARIN
  7. METFORMIN [Concomitant]
     Active Substance: METFORMIN HYDROCHLORIDE
     Route: 065
  8. VITAMIN B6 [Concomitant]
     Active Substance: PYRIDOXINE HYDROCHLORIDE

REACTIONS (1)
  - Nephrolithiasis [Unknown]
